FAERS Safety Report 5959607-2 (Version None)
Quarter: 2008Q4

REPORT INFORMATION
  Report Type: 
  Country: None (occurrence: None)
  Receive Date: 20081120
  Receipt Date: 20081111
  Transmission Date: 20090506
  Serious: Yes (Other)
  Sender: FDA-Public Use
  Company Number: US-AMGEN-US319565

PATIENT
  Age: 9 Year
  Sex: Female

DRUGS (7)
  1. ENBREL [Suspect]
     Indication: JUVENILE ARTHRITIS
     Route: 058
  2. HYDROXYCHLOROQUINE SULFATE [Concomitant]
     Indication: JUVENILE ARTHRITIS
  3. PREDNISONE TAB [Concomitant]
     Indication: JUVENILE ARTHRITIS
     Dosage: 1-2 MG/KG/DAY
  4. PREDNISONE TAB [Concomitant]
  5. PREDNISONE TAB [Concomitant]
  6. NAPROXEN [Concomitant]
     Indication: JUVENILE ARTHRITIS
  7. INDOMETHACIN [Concomitant]
     Indication: JUVENILE ARTHRITIS

REACTIONS (1)
  - AUTOIMMUNE HEPATITIS [None]
